FAERS Safety Report 4410601-2 (Version None)
Quarter: 2004Q3

REPORT INFORMATION
  Report Type: 
  Country: None (occurrence: None)
  Receive Date: 20040728
  Receipt Date: 20040728
  Transmission Date: 20050211
  Serious: Yes (Hospitalization)
  Sender: FDA-Public Use
  Company Number: None

PATIENT
  Age: 80 Year
  Sex: Female
  Weight: 65.8 kg

DRUGS (11)
  1. WARFARIN SODIUM [Suspect]
     Indication: DEEP VEIN THROMBOSIS
     Dosage: VARIED USUALLY 3-4 MG
  2. LOVENOX [Suspect]
     Indication: INTERNATIONAL NORMALISED RATIO INCREASED
     Dosage: 65 MG SQ Q12
     Dates: start: 20040405
  3. CALCIUM CARB [Concomitant]
  4. SURFAK [Concomitant]
  5. ZETIA [Concomitant]
  6. IMDUR [Concomitant]
  7. MULTI-VITAMIN [Concomitant]
  8. PINDOLOL [Concomitant]
  9. SIMVASTATIN [Concomitant]
  10. MAXZIDE [Concomitant]
  11. PERCOCET [Concomitant]

REACTIONS (3)
  - DEEP VEIN THROMBOSIS [None]
  - DUODENAL ULCER HAEMORRHAGE [None]
  - UPPER GASTROINTESTINAL HAEMORRHAGE [None]
